FAERS Safety Report 5155424-4 (Version None)
Quarter: 2006Q4

REPORT INFORMATION
  Report Type: 
  Country: None (occurrence: None)
  Receive Date: 20061114
  Receipt Date: 20061101
  Transmission Date: 20070319
  Serious: Yes (Other)
  Sender: FDA-Public Use
  Company Number: 2006135634

PATIENT
  Age: 43 Year
  Sex: Female
  Weight: 56.6996 kg

DRUGS (8)
  1. LYRICA [Suspect]
     Indication: TRIGEMINAL NEURALGIA
     Dates: start: 20060101
  2. REGLAN [Suspect]
     Indication: VOMITING
     Dates: start: 20061019
  3. DIAMOX [Concomitant]
  4. CYTOMEL [Concomitant]
  5. MONTELUKAST (MONTELUKAST) [Concomitant]
  6. FORADIL 9FORMOTEROL FUMARATE) [Concomitant]
  7. FENTANYL [Concomitant]
  8. VITAMIN B12 [Concomitant]

REACTIONS (14)
  - ABASIA [None]
  - ANXIETY [None]
  - BURNING SENSATION [None]
  - CONFUSIONAL STATE [None]
  - DELIRIUM [None]
  - MUSCULAR WEAKNESS [None]
  - NAUSEA [None]
  - OVARIAN CYST RUPTURED [None]
  - PAIN IN EXTREMITY [None]
  - SKIN BURNING SENSATION [None]
  - SPEECH DISORDER [None]
  - TREATMENT NONCOMPLIANCE [None]
  - TREMOR [None]
  - VOMITING [None]
